FAERS Safety Report 12791331 (Version 1)
Quarter: 2016Q3

REPORT INFORMATION
  Report Type: Spontaneous
  Country: US (occurrence: US)
  Receive Date: 20160928
  Receipt Date: 20160928
  Transmission Date: 20161109
  Serious: Yes (Other)
  Sender: FDA-Public Use
  Company Number: None

PATIENT
  Age: 62 Year
  Sex: Female
  Weight: 72 kg

DRUGS (9)
  1. VITAMIN B12 [Concomitant]
     Active Substance: CYANOCOBALAMIN
  2. VITAMIN C [Concomitant]
     Active Substance: ASCORBIC ACID
  3. SYNTHROID [Concomitant]
     Active Substance: LEVOTHYROXINE SODIUM
  4. CYMBALTA [Concomitant]
     Active Substance: DULOXETINE HYDROCHLORIDE
  5. CALCIUM/MAG [Concomitant]
  6. RECLAST [Suspect]
     Active Substance: ZOLEDRONIC ACID
     Indication: OSTEOPOROSIS
  7. LYRICA [Concomitant]
     Active Substance: PREGABALIN
  8. TAMOXIFEN [Concomitant]
     Active Substance: TAMOXIFEN
  9. VITAMIN D [Concomitant]
     Active Substance: CHOLECALCIFEROL

REACTIONS (4)
  - Pyrexia [None]
  - Influenza like illness [None]
  - Hand fracture [None]
  - Ankle fracture [None]

NARRATIVE: CASE EVENT DATE: 20160222
